FAERS Safety Report 9711408 (Version 1)
Quarter: 2013Q4

REPORT INFORMATION
  Report Type: Spontaneous
  Country: US (occurrence: US)
  Receive Date: 20131126
  Receipt Date: 20131126
  Transmission Date: 20140711
  Serious: No
  Sender: FDA-Public Use
  Company Number: US-BRISTOL-MYERS SQUIBB COMPANY-19368034

PATIENT
  Age: 60 Year
  Sex: Female
  Weight: 65.39 kg

DRUGS (4)
  1. BYETTA [Suspect]
     Indication: TYPE 2 DIABETES MELLITUS
     Dosage: JAN-2013: DOSE INCREASED TO 10 MCG BID?PRESCRIPTION #:  6815770
  2. METFORMIN HCL [Suspect]
     Dosage: JUL-2013:DOSE INCREASED TO 1000MG BID?FROM 1000MG BID TO 500MG AM AND 1000MG PM IN AUG-2013
     Route: 048
  3. GLIMEPIRIDE [Suspect]
     Route: 048
  4. LISINOPRIL [Concomitant]
     Route: 048

REACTIONS (8)
  - Blood glucose fluctuation [Recovered/Resolved]
  - Glycosylated haemoglobin increased [Recovered/Resolved]
  - Injection site pain [Recovered/Resolved]
  - Diarrhoea [Recovered/Resolved]
  - Nausea [Recovered/Resolved]
  - Weight decreased [Unknown]
  - Drug dose omission [Unknown]
  - Medication error [Unknown]
